FAERS Safety Report 6193854-2 (Version None)
Quarter: 2009Q2

REPORT INFORMATION
  Report Type: 
  Country: None (occurrence: None)
  Receive Date: 20090518
  Receipt Date: 20090506
  Transmission Date: 20091009
  Serious: Yes (Hospitalization)
  Sender: FDA-Public Use
  Company Number: FR-PFIZER INC-2009208431

PATIENT
  Age: 80 Year

DRUGS (7)
  1. DALACIN [Suspect]
     Dosage: 600 MG, 3X/DAY
     Route: 042
     Dates: start: 20090306, end: 20090318
  2. OFLOXACIN [Suspect]
     Indication: ARTHRITIS BACTERIAL
     Dosage: 400 MG, UNK
     Route: 048
     Dates: start: 20090211, end: 20090305
  3. OFLOXACIN [Suspect]
     Dosage: 200 MG, 2X/DAY
     Route: 048
     Dates: start: 20090318, end: 20090319
  4. RIFADIN [Suspect]
     Indication: ARTHRITIS BACTERIAL
     Dosage: 900 MG, 1X/DAY
     Route: 042
     Dates: start: 20090318, end: 20090318
  5. ORBENINE [Concomitant]
     Indication: ARTHRITIS BACTERIAL
     Dosage: 8 G, 1X/DAY
     Route: 042
     Dates: start: 20090211, end: 20090305
  6. ORBENINE [Concomitant]
     Dosage: 1.5 G, 6X/DAY
     Route: 042
     Dates: start: 20090306, end: 20090318
  7. ORBENINE [Concomitant]
     Dosage: UNK
     Dates: start: 20090301

REACTIONS (1)
  - ACUTE GENERALISED EXANTHEMATOUS PUSTULOSIS [None]
